FAERS Safety Report 24141097 (Version 2)
Quarter: 2024Q3

REPORT INFORMATION
  Report Type: Report from Study
  Country: IE (occurrence: IE)
  Receive Date: 20240726
  Receipt Date: 20240814
  Transmission Date: 20241017
  Serious: Yes (Other)
  Sender: EMD SERONO INC
  Company Number: IE-Merck Healthcare KGaA-2024039990

PATIENT
  Sex: Male

DRUGS (1)
  1. MAVENCLAD [Suspect]
     Active Substance: CLADRIBINE
     Indication: Relapsing-remitting multiple sclerosis
     Dosage: YEAR ONE WEEK ONE THERAPY: TWO DOSAGE FORM ON DAY 1 TO 2 AND ONE DOSAGE FORM ON DAY 3 TO 5
     Route: 048
     Dates: start: 20240716, end: 20240720

REACTIONS (1)
  - Lower respiratory tract infection [Not Recovered/Not Resolved]
